FAERS Safety Report 21047466 (Version 1)
Quarter: 2022Q3

REPORT INFORMATION
  Report Type: Spontaneous
  Country: US (occurrence: None)
  Receive Date: 20220706
  Receipt Date: 20220706
  Transmission Date: 20221027
  Serious: Yes (Hospitalization)
  Sender: FDA-Public Use
  Company Number: None

PATIENT
  Sex: Female
  Weight: 76 kg

DRUGS (7)
  1. FEMARA [Suspect]
     Active Substance: LETROZOLE
     Dates: end: 20220629
  2. HYDROCHLOROTHIAZIDE [Concomitant]
     Active Substance: HYDROCHLOROTHIAZIDE
  3. IBUPROFEN [Concomitant]
     Active Substance: IBUPROFEN
  4. METFORMIN [Concomitant]
     Active Substance: METFORMIN HYDROCHLORIDE
  5. SUMATRIPTAN [Concomitant]
     Active Substance: SUMATRIPTAN
  6. TYLENOL [Concomitant]
     Active Substance: ACETAMINOPHEN
  7. VICODIN [Concomitant]
     Active Substance: ACETAMINOPHEN\HYDROCODONE BITARTRATE

REACTIONS (1)
  - Cellulitis [None]

NARRATIVE: CASE EVENT DATE: 20220629
